FAERS Safety Report 17620629 (Version 1)
Quarter: 2020Q2

REPORT INFORMATION
  Report Type: Spontaneous
  Country: None (occurrence: IR)
  Receive Date: 20200403
  Receipt Date: 20200403
  Transmission Date: 20200713
  Serious: Yes (Death, Hospitalization, Other)
  Sender: FDA-Public Use
  Company Number: IR-ORION CORPORATION ORION PHARMA-20_00008831

PATIENT
  Age: 88 Year
  Sex: Female

DRUGS (2)
  1. METHOTREXATE. [Suspect]
     Active Substance: METHOTREXATE
     Indication: PRODUCT USED FOR UNKNOWN INDICATION
     Route: 065
  2. METHOTREXATE. [Suspect]
     Active Substance: METHOTREXATE
     Dosage: 2.5 MG FIVE DAYS A WEEK IN THE LAST MONTH
     Route: 065

REACTIONS (24)
  - Inappropriate schedule of product administration [Unknown]
  - Nausea [Unknown]
  - Dyspepsia [Unknown]
  - Face oedema [Unknown]
  - Accidental poisoning [Unknown]
  - Asthenia [Unknown]
  - Platelet count decreased [Unknown]
  - Haemoglobin decreased [Unknown]
  - Stomatitis [Unknown]
  - Abdominal pain [Unknown]
  - Blood pressure decreased [Unknown]
  - Pulmonary oedema [Fatal]
  - Dyspnoea [Unknown]
  - Erythema [Unknown]
  - Wrong product administered [Unknown]
  - White blood cell count decreased [Unknown]
  - Product dispensing error [Unknown]
  - Epistaxis [Unknown]
  - Vomiting [Unknown]
  - Toxicity to various agents [Unknown]
  - Gait disturbance [Unknown]
  - Blood creatinine increased [Unknown]
  - Pruritus [Unknown]
  - Mucosal inflammation [Unknown]
